FAERS Safety Report 8765663 (Version 1)
Quarter: 2012Q4

REPORT INFORMATION
  Report Type: 
  Country: DE (occurrence: DE)
  Receive Date: 20120904
  Receipt Date: 20120904
  Transmission Date: 20130627
  Serious: Yes (Life-Threatening, Hospitalization)
  Sender: FDA-Public Use
  Company Number: PHHO2010DE18307

PATIENT
  Age: 72 Year
  Sex: Male
  Weight: 86 kg

DRUGS (8)
  1. BLINDED ENALAPRIL [Suspect]
     Indication: CARDIAC FAILURE CHRONIC
     Dosage: Double blinded
     Route: 048
     Dates: start: 20110107
  2. VALSARTAN AND HYDROCHLOROTHIAZIDE [Suspect]
     Indication: CARDIAC FAILURE CHRONIC
     Dosage: Double blinded
     Route: 048
     Dates: start: 20110107
  3. BLINDED NO TREATMENT RECEIVED [Suspect]
     Indication: CARDIAC FAILURE CHRONIC
     Dosage: Double blinded
     Route: 048
     Dates: start: 20110107
  4. VALSARTAN AND HYDROCHLOROTHIAZIDE [Suspect]
     Indication: CARDIAC FAILURE CHRONIC
     Dosage: UNK
     Dates: start: 20101202, end: 20101216
  5. VALSARTAN AND HYDROCHLOROTHIAZIDE [Suspect]
     Dosage: UNK
     Route: 048
     Dates: start: 20101216, end: 20110105
  6. COMPARATOR ENALAPRIL [Suspect]
     Indication: CARDIAC FAILURE CHRONIC
     Dosage: UNK
     Dates: start: 20101117, end: 20101201
  7. MULTAQ [Concomitant]
     Indication: ATRIAL FIBRILLATION
     Dosage: 800 mg, UNK
     Dates: end: 20110718
  8. BELOC [Concomitant]
     Indication: CARDIAC FAILURE
     Dosage: 47.5 mg, UNK

REACTIONS (11)
  - Cardiac failure [Recovered/Resolved]
  - Oedema peripheral [Not Recovered/Not Resolved]
  - Pleural effusion [Not Recovered/Not Resolved]
  - Pulmonary oedema [Not Recovered/Not Resolved]
  - Orthopnoea [Not Recovered/Not Resolved]
  - Dyspnoea exertional [Not Recovered/Not Resolved]
  - Weight increased [Not Recovered/Not Resolved]
  - Disease progression [Not Recovered/Not Resolved]
  - Atrial fibrillation [Unknown]
  - Palpitations [Unknown]
  - Dyspnoea [Unknown]
